FAERS Safety Report 9517243 (Version 1)
Quarter: 2013Q3

REPORT INFORMATION
  Report Type: Spontaneous
  Country: US (occurrence: US)
  Receive Date: 20130911
  Receipt Date: 20130911
  Transmission Date: 20140515
  Serious: Yes (Life-Threatening, Hospitalization, Disabling, Other)
  Sender: FDA-Public Use
  Company Number: PHEH2013US018614

PATIENT
  Age: 60 Year
  Sex: Female

DRUGS (1)
  1. GILENYA [Suspect]
     Indication: MULTIPLE SCLEROSIS
     Route: 048
     Dates: start: 201305, end: 20130801

REACTIONS (9)
  - Progressive multifocal leukoencephalopathy [Recovering/Resolving]
  - Central nervous system lesion [Unknown]
  - Hemiparesis [Unknown]
  - Cognitive disorder [Unknown]
  - Clumsiness [Unknown]
  - Nervous system disorder [Unknown]
  - Sensory loss [Unknown]
  - Dysarthria [Unknown]
  - Visual impairment [Unknown]
